FAERS Safety Report 21112654 (Version 1)
Quarter: 2022Q3

REPORT INFORMATION
  Report Type: Spontaneous
  Country: FR (occurrence: FR)
  Receive Date: 20220721
  Receipt Date: 20220721
  Transmission Date: 20221027
  Serious: Yes (Hospitalization, Congenital Anomaly, Other)
  Sender: FDA-Public Use
  Company Number: FR-ABBVIE-21K-056-4136296-00

PATIENT
  Sex: Female
  Weight: 2.38 kg

DRUGS (2)
  1. VALPROATE SODIUM [Suspect]
     Active Substance: VALPROATE SODIUM
     Indication: Maternal exposure timing unspecified
     Route: 064
  2. TEGRETOL [Concomitant]
     Active Substance: CARBAMAZEPINE
     Indication: Product used for unknown indication

REACTIONS (29)
  - Dysmorphism [Unknown]
  - Retrognathia [Unknown]
  - Cleft palate [Unknown]
  - Congenital hand malformation [Unknown]
  - Visual impairment [Unknown]
  - Speech disorder developmental [Unknown]
  - Behaviour disorder [Unknown]
  - Vascular malformation [Unknown]
  - Neurodevelopmental disorder [Unknown]
  - Intellectual disability [Unknown]
  - Ear disorder [Unknown]
  - Nasal disorder [Unknown]
  - Oropharyngeal discomfort [Unknown]
  - Multiple congenital abnormalities [Unknown]
  - Arachnodactyly [Unknown]
  - Phalangeal agenesis [Unknown]
  - Conductive deafness [Unknown]
  - Limb hypoplasia congenital [Unknown]
  - Speech disorder [Unknown]
  - Conductive deafness [Unknown]
  - Cholesteatoma [Unknown]
  - Phalangeal hypoplasia [Unknown]
  - Camptodactyly congenital [Unknown]
  - Clinodactyly [Unknown]
  - Heart disease congenital [Unknown]
  - Psychomotor skills impaired [Unknown]
  - Arthralgia [Unknown]
  - Feeding disorder [Unknown]
  - Foetal exposure during pregnancy [Unknown]

NARRATIVE: CASE EVENT DATE: 19981130
